FAERS Safety Report 9174132 (Version 1)
Quarter: 2013Q1

REPORT INFORMATION
  Report Type: Spontaneous
  Country: US (occurrence: US)
  Receive Date: 20130320
  Receipt Date: 20130320
  Transmission Date: 20140127
  Serious: No
  Sender: FDA-Public Use
  Company Number: US-PFIZER INC-2013087981

PATIENT
  Sex: Female

DRUGS (1)
  1. IBUPROFEN [Suspect]
     Indication: KNEE DEFORMITY
     Dosage: UNK

REACTIONS (3)
  - Joint swelling [Unknown]
  - Abdominal discomfort [Unknown]
  - Stress [Unknown]
